FAERS Safety Report 18212315 (Version 1)
Quarter: 2020Q3

REPORT INFORMATION
  Report Type: Spontaneous
  Country: US (occurrence: US)
  Receive Date: 20200828
  Receipt Date: 20200828
  Transmission Date: 20201103
  Serious: Yes (Life-Threatening, Hospitalization)
  Sender: FDA-Public Use
  Company Number: None

PATIENT
  Age: 67 Year
  Sex: Female
  Weight: 71.8 kg

DRUGS (22)
  1. DEXAMETHASONE 6 MG IV DAILY [Concomitant]
     Dates: start: 20200824
  2. VEKLURY [Suspect]
     Active Substance: REMDESIVIR
     Indication: COVID-19
     Route: 041
     Dates: start: 20200824
  3. GUAIFENESIN 600 MG BID [Concomitant]
     Dates: start: 20200823
  4. MULTIVITAMIN WITH MINERALS (THERA M PLUS) 1 TAB PO DAILY [Concomitant]
     Dates: start: 20200824
  5. CALCIUM CARBONATE 500 MG PO DAILY [Concomitant]
     Dates: start: 20200824
  6. OLANZAPINE 5 MG IM HS PRN AGITATION DUE TO ACUTE DELIRIUM [Concomitant]
     Dates: start: 20200826, end: 20200826
  7. BENZONATATE 200 MG PO TID PRN COUGH [Concomitant]
     Dates: start: 20200825
  8. ACETAMINOPHEN 650 MG RECTALLY Q6H PRN FEVER [Concomitant]
     Dates: start: 20200827
  9. METOPROLOL TARTRATE 10 MG IV PUSH X 1 [Concomitant]
     Dates: start: 20200824, end: 20200824
  10. PROPOFOL 10 MG/ML AT 12.92 ML/HR [Concomitant]
     Dates: start: 20200827
  11. ENOXAPARIN 80 MG SUBCUTANEOUS BID [Concomitant]
     Dates: start: 20200824
  12. ZINC ACETATE 50 MG PO DAILY [Concomitant]
     Dates: start: 20200823
  13. LORAZEPAM 0.5 MG HS PRN ANXIETY [Concomitant]
     Dates: start: 20200825
  14. FAMOTIDINE 20 MG PO DAILY [Concomitant]
     Dates: start: 20200825
  15. CEFTRIAXONE 2 GM IV Q24 H [Concomitant]
     Dates: start: 20200826
  16. DEXTROSE 5% 1000 ML AT 50 ML/HR [Concomitant]
     Dates: start: 20200827
  17. VITAMIN D3 2000 UNITS PO DAILY [Concomitant]
     Dates: start: 20200823
  18. CARBAMAZEPINE 300 MG PO TID [Concomitant]
     Dates: start: 20200824
  19. LAMOTRIGINE 100 MG PO DAILY [Concomitant]
     Dates: start: 20200824
  20. AZITHROMYCIN 500 MG IV DAILY [Concomitant]
     Dates: start: 20200826, end: 20200827
  21. DILTIAZEM 10 MG IV PUSH X 1 [Concomitant]
     Dates: start: 20200824, end: 20200824
  22. ACETAMINOPHEN 650 MG PO Q6H PRN FEVER MORE THAN 100.4 DEGREES F [Concomitant]
     Dates: start: 20200828

REACTIONS (12)
  - Asthenia [None]
  - Vomiting [None]
  - Decreased appetite [None]
  - Atrial fibrillation [None]
  - Acute kidney injury [None]
  - Cardio-respiratory arrest [None]
  - Pyrexia [None]
  - Arrhythmia [None]
  - Dyspnoea [None]
  - Cough [None]
  - Septic shock [None]
  - Dehydration [None]

NARRATIVE: CASE EVENT DATE: 20200827
